FAERS Safety Report 13705340 (Version 5)
Quarter: 2018Q4

REPORT INFORMATION
  Report Type: Spontaneous
  Country: AR (occurrence: AR)
  Receive Date: 20170630
  Receipt Date: 20181126
  Transmission Date: 20190204
  Serious: Yes (Other)
  Sender: FDA-Public Use
  Company Number: PHHY2017AR094833

PATIENT
  Age: 32 Year
  Sex: Female
  Weight: 63 kg

DRUGS (5)
  1. ILARIS [Suspect]
     Active Substance: CANAKINUMAB
     Indication: STILL^S DISEASE
     Dosage: UNK
     Route: 058
     Dates: start: 20151104
  2. LEFLUNOMIDE. [Suspect]
     Active Substance: LEFLUNOMIDE
     Indication: STILL^S DISEASE
     Dosage: 20 MG, UNK
     Route: 048
     Dates: start: 2015, end: 2016
  3. ABATACEPT [Suspect]
     Active Substance: ABATACEPT
     Indication: STILL^S DISEASE
     Dosage: UNK
     Route: 042
     Dates: start: 2009, end: 2014
  4. ILARIS [Suspect]
     Active Substance: CANAKINUMAB
     Dosage: UNK
     Route: 058
     Dates: start: 2015
  5. TOCILIZUMAB. [Suspect]
     Active Substance: TOCILIZUMAB
     Indication: STILL^S DISEASE
     Dosage: UNK
     Route: 042
     Dates: start: 2014, end: 2015

REACTIONS (3)
  - Urinary tract infection [Unknown]
  - Normal newborn [Unknown]
  - Maternal exposure during pregnancy [Unknown]
